FAERS Safety Report 14602894 (Version 1)
Quarter: 2018Q1

REPORT INFORMATION
  Report Type: Spontaneous
  Country: US (occurrence: US)
  Receive Date: 20180304
  Receipt Date: 20180304
  Transmission Date: 20180509
  Serious: Yes (Hospitalization)
  Sender: FDA-Public Use
  Company Number: None

PATIENT
  Age: 58 Year
  Sex: Female
  Weight: 63 kg

DRUGS (3)
  1. CYCLOPHOSPHAMIDE. [Suspect]
     Active Substance: CYCLOPHOSPHAMIDE
     Dates: end: 20171129
  2. TAXOL [Suspect]
     Active Substance: PACLITAXEL
     Dates: end: 20180214
  3. DOXORUBICIN HYDROCHLORIDE. [Suspect]
     Active Substance: DOXORUBICIN HYDROCHLORIDE
     Dates: end: 20171129

REACTIONS (5)
  - Burning sensation [None]
  - Oropharyngeal pain [None]
  - Rash [None]
  - Odynophagia [None]
  - Ear pain [None]

NARRATIVE: CASE EVENT DATE: 20180220
